FAERS Safety Report 7927179-9 (Version None)
Quarter: 2011Q4

REPORT INFORMATION
  Report Type: 
  Country: None (occurrence: None)
  Receive Date: 20111118
  Receipt Date: 20111109
  Transmission Date: 20120403
  Serious: Yes (Hospitalization, Other)
  Sender: FDA-Public Use
  Company Number: US-BAYER-2011-044836

PATIENT
  Age: 28 Year
  Sex: Female
  Weight: 90.703 kg

DRUGS (6)
  1. YAZ [Suspect]
     Indication: CONTRACEPTION
     Dosage: UNK
     Dates: start: 20080601, end: 20090701
  2. OMEPRAZOLE [Concomitant]
     Indication: GASTROOESOPHAGEAL REFLUX DISEASE
     Dosage: 40 MG, QD
     Route: 048
  3. TOPAMAX [Concomitant]
     Indication: MIGRAINE
     Dosage: 100 MG, BID
     Route: 048
  4. IBUPROFEN [Concomitant]
     Dosage: 800 MG, PRN
     Route: 048
  5. YAZ [Suspect]
     Indication: PREMENSTRUAL SYNDROME
  6. TRAMADOL HCL [Concomitant]
     Indication: HEADACHE
     Dosage: 50 MG, UNK
     Route: 048

REACTIONS (8)
  - ABDOMINAL TENDERNESS [None]
  - ABDOMINAL PAIN UPPER [None]
  - CHOLECYSTITIS ACUTE [None]
  - CHOLELITHIASIS [None]
  - PAIN [None]
  - FEAR [None]
  - DYSPNOEA [None]
  - INJURY [None]
